FAERS Safety Report 7749671-2 (Version None)
Quarter: 2011Q3

REPORT INFORMATION
  Report Type: 
  Country: None (occurrence: None)
  Receive Date: 20110914
  Receipt Date: 20110903
  Transmission Date: 20111222
  Serious: No
  Sender: FDA-Public Use
  Company Number: US-JNJFOC-20110902861

PATIENT
  Sex: Male
  Weight: 88.45 kg

DRUGS (4)
  1. DURAGESIC-100 [Suspect]
     Indication: SPINAL DISORDER
     Route: 062
     Dates: start: 20110101
  2. HYDROCODONE [Concomitant]
     Indication: BREAKTHROUGH PAIN
     Route: 048
     Dates: start: 20040101
  3. XANAX [Concomitant]
     Indication: MUSCLE SPASMS
     Route: 048
     Dates: start: 20050101
  4. DURAGESIC-100 [Suspect]
     Indication: INTERVERTEBRAL DISC DEGENERATION
     Route: 062
     Dates: start: 20110101

REACTIONS (3)
  - DRUG INEFFECTIVE [None]
  - WRONG TECHNIQUE IN DRUG USAGE PROCESS [None]
  - PRODUCT ADHESION ISSUE [None]
